FAERS Safety Report 5574545-5 (Version None)
Quarter: 2007Q4

REPORT INFORMATION
  Report Type: 
  Country: None (occurrence: None)
  Receive Date: 20071227
  Receipt Date: 20071211
  Transmission Date: 20080405
  Serious: Yes (Other)
  Sender: FDA-Public Use
  Company Number: US-BAYER-200715548NA

PATIENT
  Age: 45 Year
  Sex: Female

DRUGS (1)
  1. NEXAVAR [Suspect]
     Indication: MALIGNANT MELANOMA
     Dosage: TOTAL DAILY DOSE: 800 MG  UNIT DOSE: 200 MG
     Route: 048
     Dates: start: 20071101

REACTIONS (4)
  - HYPERKERATOSIS [None]
  - ORAL PAIN [None]
  - RECTAL HAEMORRHAGE [None]
  - TONGUE BLISTERING [None]
